FAERS Safety Report 8848207 (Version 4)
Quarter: 2013Q1

REPORT INFORMATION
  Report Type: Report from Study
  Country: JP (occurrence: JP)
  Receive Date: 20121018
  Receipt Date: 20130215
  Transmission Date: 20140127
  Serious: Yes (Hospitalization)
  Sender: FDA-Public Use
  Company Number: JP-009507513-2012SP032447

PATIENT
  Age: 58 Year
  Sex: Male
  Weight: 81 kg

DRUGS (21)
  1. PEGINTRON [Suspect]
     Indication: CHRONIC HEPATITIS C
     Dosage: 120 MICROGRAM, QW
     Route: 058
     Dates: start: 20120404
  2. PEGINTRON [Suspect]
     Dosage: 120 MICROGRAM, QW
     Route: 058
     Dates: start: 20120627
  3. REBETOL [Suspect]
     Indication: CHRONIC HEPATITIS C
     Dosage: 1000 MG, QD
     Route: 048
     Dates: start: 20120404, end: 20120424
  4. REBETOL [Suspect]
     Dosage: 800 MG, QD
     Route: 048
     Dates: start: 20120425, end: 20120501
  5. REBETOL [Suspect]
     Dosage: 600 MG, QD
     Route: 048
     Dates: start: 20120502, end: 20120516
  6. REBETOL [Suspect]
     Dosage: 400 MG, QD
     Route: 048
     Dates: start: 20120517, end: 20120529
  7. REBETOL [Suspect]
     Dosage: 200MG/DAY, 400 MG/DAY, ON ALTERNATE DAYS
     Route: 048
     Dates: start: 20120530, end: 20120627
  8. REBETOL [Suspect]
     Dosage: 400MG, 600 MG/ 2 DAYS
     Route: 048
     Dates: start: 20120628, end: 20120711
  9. REBETOL [Suspect]
     Dosage: 400 MG, QD
     Route: 048
     Dates: start: 20120712, end: 20120718
  10. REBETOL [Suspect]
     Dosage: 400MG, 600 MG/ 2 DAYS
     Route: 048
     Dates: start: 20120719, end: 20120912
  11. REBETOL [Suspect]
     Dosage: 600 MG, QD
     Route: 048
     Dates: start: 20120913, end: 20120919
  12. TELAVIC [Suspect]
     Indication: CHRONIC HEPATITIS C
     Dosage: 2250 MG, QD
     Route: 048
     Dates: start: 20120404, end: 20120522
  13. TELAVIC [Suspect]
     Dosage: 2000 MG, QD
     Route: 048
     Dates: start: 20120523, end: 20120605
  14. TELAVIC [Suspect]
     Dosage: 1750 MG, QD
     Route: 048
     Dates: start: 20120606, end: 20120620
  15. TELAVIC [Suspect]
     Dosage: 2000 MG, QD
     Route: 048
     Dates: start: 20120621, end: 20120627
  16. DIOVAN [Concomitant]
     Indication: HYPERTENSION
     Dosage: 80 MG, QD, FORMULATION: POR
     Route: 048
  17. GOODMIN [Concomitant]
     Indication: PROPHYLAXIS
     Dosage: 0.25 MG, QD
     Route: 048
     Dates: start: 20120404
  18. GOODMIN [Concomitant]
     Dosage: 0.25 MG, QD AS NEEDED
     Route: 048
     Dates: end: 20120606
  19. ICOSAPENT ETHYL [Concomitant]
     Indication: PROPHYLAXIS
     Dosage: 1800 MG, QD
     Route: 048
     Dates: start: 20120425
  20. [THERAPY UNSPECIFIED] [Concomitant]
     Indication: PROPHYLAXIS
     Dosage: 100 MG, QD
     Route: 048
     Dates: start: 20120523
  21. [THERAPY UNSPECIFIED] [Concomitant]
     Indication: PROPHYLAXIS

REACTIONS (5)
  - Anaemia [Recovering/Resolving]
  - Insomnia [Not Recovered/Not Resolved]
  - Malaise [Not Recovered/Not Resolved]
  - Haemoglobin decreased [Not Recovered/Not Resolved]
  - Decreased appetite [Recovered/Resolved]
